FAERS Safety Report 17412303 (Version 1)
Quarter: 2020Q1

REPORT INFORMATION
  Report Type: Spontaneous
  Country: DK (occurrence: DK)
  Receive Date: 20200213
  Receipt Date: 20200213
  Transmission Date: 20200409
  Serious: Yes (Hospitalization)
  Sender: FDA-Public Use
  Company Number: DK-TEVA-2020-DK-1184638

PATIENT
  Age: 74 Year
  Sex: Female

DRUGS (13)
  1. AMLODIPIN ^ACTAVIS^ [Suspect]
     Active Substance: AMLODIPINE BESYLATE
     Indication: HYPERTENSION
     Dosage: STRENGTH: 10 MG
     Route: 048
     Dates: start: 2013, end: 20200117
  2. CIRCADIN [Concomitant]
     Active Substance: MELATONIN
     Indication: INSOMNIA
     Dosage: STRENGTH: 2 MG
     Route: 048
     Dates: start: 20200103
  3. ENALAPRIL ^TEVA^ [Suspect]
     Active Substance: ENALAPRIL MALEATE
     Indication: HYPERTENSION
     Dosage: STRENGTH: 10 MG
     Route: 048
     Dates: start: 2015, end: 20200118
  4. CITALOPRAM [Concomitant]
     Active Substance: CITALOPRAM HYDROBROMIDE
     Indication: DEPRESSION
     Dosage: STRENGTH: 20 MG
     Route: 048
     Dates: start: 20200104
  5. CALCIUM OG D-VITAMIN [Concomitant]
     Indication: VITAMIN SUPPLEMENTATION
     Dosage: STRENGTH: 400 MG + 19 MICROGRAMS
     Route: 048
     Dates: start: 201812
  6. LACTULOSE. [Concomitant]
     Active Substance: LACTULOSE
     Indication: CONSTIPATION
     Dosage: STRENGTH: 600 MG/ML, DOSE: 15 ML AS NEEDED NOT MORE THAN 2 TIMES DAILY
     Route: 048
     Dates: start: 20200103
  7. APOVIT B-COMBIN STAERK [Concomitant]
     Indication: VITAMIN SUPPLEMENTATION
     Dosage: 3 DOSAGE FORMS
     Route: 048
     Dates: start: 201310
  8. DULCOLAX NOS [Concomitant]
     Active Substance: BISACODYL OR DOCUSATE SODIUM
     Indication: CONSTIPATION
     Dosage: STRENGTH: 20 MG, DOSE: 1 RECTAL SUPPOSITORY AS NEEDED NOT MORE THAN 2 TIMES DAILY
     Route: 054
     Dates: start: 201806
  9. THIAMINE. [Concomitant]
     Active Substance: THIAMINE
     Indication: VITAMIN SUPPLEMENTATION
     Dosage: STRENGTH: 300 MG
     Route: 048
     Dates: start: 201807
  10. TRIMBOW [Concomitant]
     Active Substance: BECLOMETHASONE DIPROPIONATE\FORMOTEROL FUMARATE\GLYCOPYRROLATE
     Indication: CHRONIC OBSTRUCTIVE PULMONARY DISEASE
     Dosage: STRENGTH: 87+5+9 UG
     Route: 055
     Dates: start: 20200103
  11. VENTOLINE [Concomitant]
     Active Substance: ALBUTEROL
     Indication: ASTHMA
     Dosage: STRENGTH: 0.1 MG/DOSE, DOSE: 1 BREATH AS NEEDED NOT MORE THAN 6 TIMES DAILY
     Route: 055
     Dates: start: 20200103
  12. OMEPRAZOLE ^TEVA^ [Concomitant]
     Indication: GASTROOESOPHAGEAL REFLUX DISEASE
     Dosage: STRENGTH: 20 MG
     Route: 048
     Dates: start: 20200104
  13. ELTROXIN [Concomitant]
     Active Substance: LEVOTHYROXINE
     Indication: MYXOEDEMA
     Dosage: STRENGTH: 50 UG
     Route: 048
     Dates: start: 201505

REACTIONS (4)
  - Hypotension [Recovering/Resolving]
  - Fatigue [Recovering/Resolving]
  - Dizziness [Recovering/Resolving]
  - Fall [Recovering/Resolving]

NARRATIVE: CASE EVENT DATE: 202001
